FAERS Safety Report 6824449-2 (Version None)
Quarter: 2010Q3

REPORT INFORMATION
  Report Type: 
  Country: None (occurrence: None)
  Receive Date: 20100708
  Receipt Date: 20070102
  Transmission Date: 20110219
  Serious: No
  Sender: FDA-Public Use
  Company Number: US-PFIZER INC-2006133293

PATIENT
  Sex: Female

DRUGS (2)
  1. CHANTIX [Suspect]
     Indication: SMOKING CESSATION THERAPY
  2. IMMUNOSUPPRESSIVE AGENTS [Interacting]
     Indication: IMMUNOSUPPRESSANT DRUG THERAPY

REACTIONS (8)
  - ARTHRITIS [None]
  - CONSTIPATION [None]
  - DIZZINESS [None]
  - DRUG INTERACTION [None]
  - HERPES ZOSTER [None]
  - MALAISE [None]
  - NAUSEA [None]
  - VOMITING [None]
